FAERS Safety Report 25502544 (Version 1)
Quarter: 2025Q3

REPORT INFORMATION
  Report Type: Other
  Country: IN (occurrence: IN)
  Receive Date: 20250702
  Receipt Date: 20250702
  Transmission Date: 20251020
  Serious: Yes (Other)
  Sender: LYNE LABORATORIES
  Company Number: IN-Lyne Laboratories Inc.-2179750

PATIENT
  Age: 51 Year
  Sex: Male

DRUGS (1)
  1. TRIAMCINOLONE ACETONIDE [Suspect]
     Active Substance: TRIAMCINOLONE ACETONIDE
     Indication: Diabetic retinal oedema

REACTIONS (2)
  - Central serous chorioretinopathy [Recovered/Resolved]
  - Product use in unapproved indication [Unknown]
